FAERS Safety Report 10242574 (Version 2)
Quarter: 2014Q2

REPORT INFORMATION
  Report Type: Spontaneous
  Country: US (occurrence: US)
  Receive Date: 20140617
  Receipt Date: 20140617
  Transmission Date: 20141212
  Serious: Yes (Other)
  Sender: FDA-Public Use
  Company Number: ALCN2008US003183

PATIENT
  Age: 49 Year
  Sex: Male

DRUGS (6)
  1. IOPIDINE [Suspect]
     Indication: INTRAOCULAR PRESSURE INCREASED
     Dosage: 1 GTT OU X 1
     Route: 047
     Dates: start: 20000924, end: 20000924
  2. IOPIDINE [Suspect]
     Dosage: 1 GTT OU X 1
     Route: 047
     Dates: start: 20070324, end: 20070324
  3. TRAVATAN [Suspect]
     Indication: INTRAOCULAR PRESSURE INCREASED
     Dosage: 1 GTT OU Q HS
     Route: 047
     Dates: start: 20070324
  4. TIMOLOL [Suspect]
     Dosage: 1 GTT OU QD
     Route: 047
     Dates: start: 20000924
  5. BRIMONIDINE [Concomitant]
     Indication: INTRAOCULAR PRESSURE INCREASED
     Dosage: 1 GTT OD BID
     Route: 047
     Dates: start: 20070324
  6. DORZOLAMIDE HYDROCHLORIDE AND TIMOLOL MALEATE [Suspect]

REACTIONS (3)
  - Retinal detachment [Not Recovered/Not Resolved]
  - Visual acuity reduced [Not Recovered/Not Resolved]
  - Macular fibrosis [Unknown]
